FAERS Safety Report 19428306 (Version 1)
Quarter: 2021Q2

REPORT INFORMATION
  Report Type: Spontaneous
  Country: DE (occurrence: DE)
  Receive Date: 20210616
  Receipt Date: 20210616
  Transmission Date: 20210717
  Serious: Yes (Other)
  Sender: FDA-Public Use
  Company Number: DE-CELLTRION INC.-2021DE008139

PATIENT

DRUGS (5)
  1. TRASTUZUMAB (UNKNOWN) [Suspect]
     Active Substance: TRASTUZUMAB
     Dosage: THREE COURSES OF TRASTUZUMAB
  2. PACLITAXEL. [Suspect]
     Active Substance: PACLITAXEL
     Dosage: SEVEN COURSES OF PACLITAXEL
  3. TRASTUZUMAB (UNKNOWN) [Suspect]
     Active Substance: TRASTUZUMAB
     Dosage: 6 MG/KG EVERY 3 WEEKS
  4. PACLITAXEL. [Suspect]
     Active Substance: PACLITAXEL
     Indication: HER2 POSITIVE BREAST CANCER
     Dosage: 80 MG/M2, WEEKLY
  5. TRASTUZUMAB (UNKNOWN) [Suspect]
     Active Substance: TRASTUZUMAB
     Indication: HER2 POSITIVE BREAST CANCER
     Dosage: 8 MG/KG (LOADING DOSE)

REACTIONS (3)
  - Neuropathy peripheral [Unknown]
  - Keratitis [Unknown]
  - Immune-mediated adverse reaction [Unknown]
